FAERS Safety Report 7306086-9 (Version None)
Quarter: 2011Q1

REPORT INFORMATION
  Report Type: 
  Country: None (occurrence: None)
  Receive Date: 20110222
  Receipt Date: 20110218
  Transmission Date: 20110831
  Serious: Yes (Death, Other)
  Sender: FDA-Public Use
  Company Number: US-AMGEN-USASP2011009610

PATIENT
  Sex: Male

DRUGS (1)
  1. NPLATE [Suspect]
     Indication: IDIOPATHIC THROMBOCYTOPENIC PURPURA
     Dosage: 120 A?G, UNK
     Dates: start: 20110122, end: 20110122

REACTIONS (3)
  - PERITONITIS [None]
  - SQUAMOUS CELL CARCINOMA [None]
  - RENAL FAILURE CHRONIC [None]
